FAERS Safety Report 8950774 (Version 1)
Quarter: 2012Q4

REPORT INFORMATION
  Report Type: 
  Country: NL (occurrence: NL)
  Receive Date: 20121206
  Receipt Date: 20121206
  Transmission Date: 20130627
  Serious: Yes (Other)
  Sender: FDA-Public Use
  Company Number: NL-GILEAD-2012-0065615

PATIENT
  Age: 49 Year
  Sex: Male

DRUGS (4)
  1. VIREAD [Suspect]
     Indication: HIV INFECTION
     Route: 048
  2. DIDANOSINE [Suspect]
     Indication: HIV INFECTION
  3. LOPINAVIR W/RITONAVIR [Concomitant]
     Indication: HIV INFECTION
  4. NEVIRAPINE [Concomitant]
     Indication: HIV INFECTION

REACTIONS (1)
  - Portal hypertension [Unknown]
